FAERS Safety Report 4825005-8 (Version None)
Quarter: 2005Q4

REPORT INFORMATION
  Report Type: 
  Country: None (occurrence: None)
  Receive Date: 20051014
  Receipt Date: 20050722
  Transmission Date: 20060501
  Serious: Yes (Disabling, Other)
  Sender: FDA-Public Use
  Company Number: 2005077106

PATIENT
  Age: 75 Year
  Sex: Female

DRUGS (1)
  1. MACUGEN [Suspect]
     Indication: ILL-DEFINED DISORDER
     Dates: start: 20050421

REACTIONS (2)
  - CATARACT [None]
  - ENDOPHTHALMITIS [None]
